FAERS Safety Report 7712301-X (Version None)
Quarter: 2011Q3

REPORT INFORMATION
  Report Type: 
  Country: None (occurrence: None)
  Receive Date: 20110826
  Receipt Date: 20110822
  Transmission Date: 20111222
  Serious: Yes (Hospitalization, Other)
  Sender: FDA-Public Use
  Company Number: US-PFIZER INC-2011098134

PATIENT
  Sex: Female

DRUGS (1)
  1. CELEBREX [Suspect]
     Dosage: 1 PER DAY FOR 10 DAYS
     Route: 048
     Dates: start: 20110503

REACTIONS (4)
  - THROAT TIGHTNESS [None]
  - PHARYNGEAL OEDEMA [None]
  - DYSPNOEA [None]
  - DYSPHAGIA [None]
